FAERS Safety Report 21211870 (Version 3)
Quarter: 2022Q4

REPORT INFORMATION
  Report Type: Spontaneous
  Country: US (occurrence: None)
  Receive Date: 20220815
  Receipt Date: 20221003
  Transmission Date: 20230112
  Serious: Yes (Other)
  Sender: FDA-Public Use
  Company Number: US-ROCHE-3158805

PATIENT
  Sex: Male
  Weight: 95.2 kg

DRUGS (4)
  1. ACTIVASE [Suspect]
     Active Substance: ALTEPLASE
     Indication: Ischaemic stroke
     Route: 065
  2. ACTIVASE [Suspect]
     Active Substance: ALTEPLASE
  3. ACTIVASE [Suspect]
     Active Substance: ALTEPLASE
     Indication: Cerebrovascular accident
     Route: 042
     Dates: start: 20220729, end: 20220729
  4. ACTIVASE [Suspect]
     Active Substance: ALTEPLASE

REACTIONS (3)
  - Device breakage [Unknown]
  - Circumstance or information capable of leading to medication error [Unknown]
  - No adverse event [Unknown]
